FAERS Safety Report 10086156 (Version 2)
Quarter: 2014Q2

REPORT INFORMATION
  Report Type: Spontaneous
  Country: FR (occurrence: FR)
  Receive Date: 20140418
  Receipt Date: 20140418
  Transmission Date: 20141212
  Serious: Yes (Hospitalization, Other)
  Sender: FDA-Public Use
  Company Number: FR-009507513-1101FRA00050

PATIENT
  Age: 36 Year
  Sex: Male

DRUGS (4)
  1. SINGULAIR [Suspect]
     Route: 048
     Dates: start: 20101002, end: 20101002
  2. TOPALGIC (TRAMADOL HYDROCHLORIDE) [Suspect]
     Route: 048
     Dates: start: 20101002, end: 20101002
  3. EXACYL [Suspect]
     Route: 048
     Dates: start: 20101002, end: 20101002
  4. DOMPERIDONE [Suspect]
     Route: 048
     Dates: start: 20101002, end: 20101002

REACTIONS (3)
  - Intentional overdose [Recovered/Resolved]
  - Generalised tonic-clonic seizure [Recovered/Resolved]
  - Hypoglycaemia [Recovered/Resolved]
